FAERS Safety Report 13835336 (Version 4)
Quarter: 2018Q3

REPORT INFORMATION
  Report Type: Spontaneous
  Country: US (occurrence: US)
  Receive Date: 20170804
  Receipt Date: 20180731
  Transmission Date: 20181010
  Serious: Yes (Other)
  Sender: FDA-Public Use
  Company Number: US-ALEXION PHARMACEUTICALS INC-A201708421

PATIENT
  Sex: Male

DRUGS (3)
  1. STRENSIQ [Suspect]
     Active Substance: ASFOTASE ALFA
     Dosage: UNK
     Route: 065
     Dates: start: 20170731
  2. STRENSIQ [Suspect]
     Active Substance: ASFOTASE ALFA
     Indication: HYPOPHOSPHATASIA
     Dosage: 2 MG/KG, THREE TIMES PER WEEK
     Route: 058
     Dates: start: 20160315
  3. BENADRYL [Concomitant]
     Active Substance: DIPHENHYDRAMINE HYDROCHLORIDE
     Indication: PREMEDICATION
     Dosage: OCCASIONAL
     Route: 065

REACTIONS (11)
  - Erythema [Recovered/Resolved]
  - Chest discomfort [Recovered/Resolved]
  - Lipodystrophy acquired [Recovered/Resolved]
  - Dyspnoea [Recovered/Resolved]
  - Seasonal allergy [Unknown]
  - Injection site nodule [Recovered/Resolved]
  - Anaphylactoid reaction [Recovered/Resolved]
  - Allergy to plants [Unknown]
  - Injection site discolouration [Recovered/Resolved]
  - Skin swelling [Recovered/Resolved]
  - Injection site erythema [Recovered/Resolved]

NARRATIVE: CASE EVENT DATE: 20170724
